FAERS Safety Report 13578371 (Version 2)
Quarter: 2017Q2

REPORT INFORMATION
  Report Type: Spontaneous
  Country: EG (occurrence: EG)
  Receive Date: 20170524
  Receipt Date: 20170602
  Transmission Date: 20170830
  Serious: Yes (Death)
  Sender: FDA-Public Use
  Company Number: EG-ABBVIE-17P-048-1984260-00

PATIENT
  Age: 1 Day
  Sex: Female

DRUGS (1)
  1. SURVANTA [Suspect]
     Active Substance: BERACTANT
     Indication: ACUTE RESPIRATORY DISTRESS SYNDROME
     Dosage: 1 DOSE ON DAY OF DELIVERY, USED ONLY ONCE.
     Route: 065
     Dates: start: 20170410, end: 20170410

REACTIONS (1)
  - Pulmonary haemorrhage [Fatal]

NARRATIVE: CASE EVENT DATE: 20170411
